FAERS Safety Report 12628230 (Version 1)
Quarter: 2016Q3

REPORT INFORMATION
  Report Type: Report from Study
  Country: CA (occurrence: CA)
  Receive Date: 20160808
  Receipt Date: 20160808
  Transmission Date: 20161109
  Serious: Yes (Other)
  Sender: FDA-Public Use
  Company Number: CA-ROCHE-1661670

PATIENT
  Age: 62 Year
  Sex: Male
  Weight: 80.27 kg

DRUGS (5)
  1. SOVALDI [Suspect]
     Active Substance: SOFOSBUVIR
     Indication: CHRONIC HEPATITIS C
     Route: 048
     Dates: start: 20140527, end: 2014
  2. RIBAVIRIN. [Suspect]
     Active Substance: RIBAVIRIN
     Indication: CHRONIC HEPATITIS C
     Route: 065
     Dates: start: 2014, end: 2014
  3. METFORMIN [Concomitant]
     Active Substance: METFORMIN HYDROCHLORIDE
  4. CARVEDILOL. [Concomitant]
     Active Substance: CARVEDILOL
  5. PEGASYS [Suspect]
     Active Substance: PEGINTERFERON ALFA-2A
     Indication: CHRONIC HEPATITIS C
     Route: 042
     Dates: start: 2014, end: 2014

REACTIONS (2)
  - Drug ineffective [Unknown]
  - Hepatitis C [Recovered/Resolved]
